FAERS Safety Report 18231723 (Version 4)
Quarter: 2021Q1

REPORT INFORMATION
  Report Type: Spontaneous
  Country: US (occurrence: US)
  Receive Date: 20200904
  Receipt Date: 20210211
  Transmission Date: 20210419
  Serious: No
  Sender: FDA-Public Use
  Company Number: US-ASTRAZENECA-2020SF11543

PATIENT
  Age: 16836 Day
  Sex: Female
  Weight: 98 kg

DRUGS (4)
  1. HUMALIN N [Concomitant]
     Indication: DIABETES MELLITUS
  2. HUMALIN R [Concomitant]
     Indication: DIABETES MELLITUS
  3. BYDUREON [Suspect]
     Active Substance: EXENATIDE
     Indication: DIABETES MELLITUS
     Route: 058
     Dates: start: 20200405
  4. METFORMIN [Concomitant]
     Active Substance: METFORMIN HYDROCHLORIDE
     Indication: DIABETES MELLITUS

REACTIONS (5)
  - Injection site nodule [Unknown]
  - Intentional device misuse [Unknown]
  - Device issue [Unknown]
  - Lack of injection site rotation [Unknown]
  - Wrong technique in device usage process [Unknown]

NARRATIVE: CASE EVENT DATE: 20200827
